FAERS Safety Report 12657283 (Version 1)
Quarter: 2016Q3

REPORT INFORMATION
  Report Type: Spontaneous
  Country: None (occurrence: US)
  Receive Date: 20160816
  Receipt Date: 20160816
  Transmission Date: 20161109
  Serious: No
  Sender: FDA-Public Use
  Company Number: US-ENDO PHARMACEUTICALS INC.-2016-002372

PATIENT
  Age: 55 Year
  Sex: Female
  Weight: 56.75 kg

DRUGS (3)
  1. SUMAVEL DOSEPRO [Suspect]
     Active Substance: SUMATRIPTAN SUCCINATE
     Indication: CLUSTER HEADACHE
     Route: 058
     Dates: start: 20160324
  2. NAPROSYN [Concomitant]
     Active Substance: NAPROXEN
     Indication: HEADACHE
  3. SUMAVEL DOSEPRO [Suspect]
     Active Substance: SUMATRIPTAN SUCCINATE
     Indication: MIGRAINE
     Route: 058
     Dates: start: 2009

REACTIONS (3)
  - Drug effect decreased [Unknown]
  - Injection site haemorrhage [Recovered/Resolved]
  - Injection site scar [Unknown]

NARRATIVE: CASE EVENT DATE: 201602
